FAERS Safety Report 8530590-9 (Version None)
Quarter: 2012Q3

REPORT INFORMATION
  Report Type: 
  Country: None (occurrence: None)
  Receive Date: 20120723
  Receipt Date: 20120711
  Transmission Date: 20120928
  Serious: Yes (Other)
  Sender: FDA-Public Use
  Company Number: JP-VERTEX PHARMACEUTICALS INC.-AE-2012-008215

PATIENT
  Age: 56 Year
  Sex: Male

DRUGS (17)
  1. TELAVIC (TELAPREVIR) [Suspect]
     Route: 048
     Dates: start: 20120411, end: 20120521
  2. ZOLPIDEM [Concomitant]
     Route: 048
     Dates: start: 20120521
  3. REBETOL [Concomitant]
     Route: 048
     Dates: start: 20120528, end: 20120611
  4. XYZAL [Concomitant]
     Route: 048
     Dates: start: 20120521, end: 20120701
  5. DEPAS [Concomitant]
     Route: 048
  6. PEG-INTRON [Concomitant]
     Route: 058
     Dates: start: 20120521, end: 20120604
  7. DERMOVATE SCALP [Concomitant]
     Route: 051
     Dates: start: 20120507, end: 20120701
  8. ALLEGRA [Concomitant]
     Route: 048
     Dates: start: 20120514, end: 20120701
  9. DIFLAL [Concomitant]
     Route: 061
     Dates: start: 20120521, end: 20120701
  10. MOTILIUM [Concomitant]
     Route: 054
     Dates: start: 20120529, end: 20120611
  11. TELAVIC (TELAPREVIR) [Suspect]
     Indication: HEPATITIS C
     Route: 048
     Dates: start: 20120409, end: 20120521
  12. ALLEGRA [Concomitant]
     Route: 048
     Dates: start: 20120507, end: 20120513
  13. ALLOPURINOL [Concomitant]
     Route: 048
  14. RINEDRON V [Concomitant]
     Route: 061
     Dates: start: 20120413, end: 20120506
  15. REBETOL [Concomitant]
     Indication: HEPATITIS C
     Route: 048
     Dates: start: 20120409, end: 20120425
  16. REBETOL [Concomitant]
     Route: 048
     Dates: start: 20120426, end: 20120527
  17. PEG-INTRON [Concomitant]
     Indication: HEPATITIS C
     Route: 058
     Dates: start: 20120409, end: 20120514

REACTIONS (1)
  - RETINOPATHY [None]
